FAERS Safety Report 9387857 (Version 1)
Quarter: 2013Q3

REPORT INFORMATION
  Report Type: Spontaneous
  Country: US (occurrence: None)
  Receive Date: 20130701
  Receipt Date: 20130701
  Transmission Date: 20140515
  Serious: Yes (Other)
  Sender: FDA-Public Use
  Company Number: AUR-APL-2013-05356

PATIENT
  Age: 53 Year
  Sex: Female

DRUGS (3)
  1. LEVOFLOXACIN [Suspect]
  2. PIPERACILLIN+TAZOBACTAM (PIPERACILLIN, TAZOBACTAM) [Suspect]
  3. RIFAMPICIN [Suspect]

REACTIONS (3)
  - Pneumonia legionella [None]
  - Acute respiratory distress syndrome [None]
  - C-reactive protein increased [None]
